FAERS Safety Report 5752513-8 (Version None)
Quarter: 2008Q2

REPORT INFORMATION
  Report Type: 
  Country: None (occurrence: None)
  Receive Date: 20080529
  Receipt Date: 20080514
  Transmission Date: 20081010
  Serious: Yes (Hospitalization)
  Sender: FDA-Public Use
  Company Number: PHHY2008JP03543

PATIENT
  Sex: Male
  Weight: 62 kg

DRUGS (1)
  1. VOLTAREN [Suspect]
     Indication: POSTOPERATIVE FEVER
     Dosage: 50 MG, QD
     Route: 054
     Dates: start: 20080312

REACTIONS (6)
  - ABSCESS [None]
  - ANASTOMOTIC LEAK [None]
  - ARTIFICIAL ANUS [None]
  - INJURY [None]
  - PROCEDURAL COMPLICATION [None]
  - RECTAL PERFORATION [None]
